FAERS Safety Report 7513760-8 (Version None)
Quarter: 2011Q2

REPORT INFORMATION
  Report Type: 
  Country: None (occurrence: None)
  Receive Date: 20110531
  Receipt Date: 20110520
  Transmission Date: 20111010
  Serious: Yes (Hospitalization, Other)
  Sender: FDA-Public Use
  Company Number: FR-BAYER-2011-012752

PATIENT
  Age: 37 Year
  Sex: Female
  Weight: 70 kg

DRUGS (1)
  1. MIRENA [Suspect]
     Dosage: DAILY DOSE 20 ?G
     Dates: start: 20070401, end: 20110120

REACTIONS (7)
  - BENIGN HYDATIDIFORM MOLE [None]
  - AMENORRHOEA [None]
  - PREGNANCY WITH CONTRACEPTIVE DEVICE [None]
  - VAGINAL HAEMORRHAGE [None]
  - ABDOMINAL PAIN [None]
  - HAEMORRHAGIC OVARIAN CYST [None]
  - METRORRHAGIA [None]
